FAERS Safety Report 22986670 (Version 5)
Quarter: 2024Q4

REPORT INFORMATION
  Report Type: Spontaneous
  Country: US (occurrence: US)
  Receive Date: 20230926
  Receipt Date: 20241016
  Transmission Date: 20250115
  Serious: Yes (Other)
  Sender: CELLTRION
  Company Number: US-CELLTRION INC.-2023US018421

PATIENT

DRUGS (1)
  1. INFLECTRA [Suspect]
     Active Substance: INFLIXIMAB-DYYB
     Indication: Diverticulitis
     Dosage: 5 MG/KG, EVERY 8 WEEKS
     Dates: start: 202205

REACTIONS (6)
  - Bradycardia [Unknown]
  - Hypotension [Unknown]
  - Fatigue [Unknown]
  - Dizziness [Unknown]
  - Intentional dose omission [Unknown]
  - Intentional product use issue [Unknown]
